FAERS Safety Report 20502505 (Version 6)
Quarter: 2022Q1

REPORT INFORMATION
  Report Type: Spontaneous
  Country: GB (occurrence: GB)
  Receive Date: 20220222
  Receipt Date: 20220329
  Transmission Date: 20220423
  Serious: Yes (Other)
  Sender: FDA-Public Use
  Company Number: GB-Bristol-Myers Squibb Company-16861130

PATIENT
  Age: 15 Year
  Sex: Female

DRUGS (8)
  1. NEXPLANON [Interacting]
     Active Substance: ETONOGESTREL
     Indication: Contraception
     Dosage: 68 MG, UNK
     Route: 059
  2. ETONOGESTREL [Suspect]
     Active Substance: ETONOGESTREL
     Indication: Contraception
     Dosage: UNK
     Route: 065
  3. CETIRIZINE [Interacting]
     Active Substance: CETIRIZINE HYDROCHLORIDE
     Indication: Seasonal allergy
     Dosage: OCCASIONAL CETIRIZINE
     Route: 048
  4. ABILIFY [Interacting]
     Active Substance: ARIPIPRAZOLE
     Indication: Bipolar disorder
     Dosage: UNK
     Route: 065
  5. LAMICTAL [Interacting]
     Active Substance: LAMOTRIGINE
     Indication: Bipolar disorder
     Dosage: 150 MILLIGRAM, QD
     Route: 048
  6. LAMICTAL [Interacting]
     Active Substance: LAMOTRIGINE
     Dosage: 50 MILLIGRAM, TID, 150 MILLIGRAM DAILY
     Route: 048
  7. LAMOTRIGINE [Interacting]
     Active Substance: LAMOTRIGINE
     Indication: Bipolar disorder
     Dosage: 50 MILLIGRAM, QD
  8. LAMOTRIGINE [Interacting]
     Active Substance: LAMOTRIGINE
     Dosage: 50 MILLIGRAM, TID
     Route: 048

REACTIONS (11)
  - Abortion spontaneous [Unknown]
  - Intermenstrual bleeding [Unknown]
  - Intermenstrual bleeding [Unknown]
  - Pregnancy on contraceptive [Recovered/Resolved]
  - Pregnancy with contraceptive device [Recovered/Resolved]
  - Unintended pregnancy [Recovered/Resolved]
  - Pregnancy [Recovered/Resolved]
  - Drug interaction [Unknown]
  - Pregnancy with implant contraceptive [Recovered/Resolved]
  - Maternal exposure during pregnancy [Recovered/Resolved]
  - Exposure during pregnancy [Unknown]
